FAERS Safety Report 24830012 (Version 1)
Quarter: 2025Q1

REPORT INFORMATION
  Report Type: Spontaneous
  Country: US (occurrence: None)
  Receive Date: 20250109
  Receipt Date: 20250109
  Transmission Date: 20250409
  Serious: Yes (Other)
  Sender: FDA-CTU
  Company Number: None

PATIENT
  Age: 43 Year
  Sex: Male
  Weight: 116.57 kg

DRUGS (1)
  1. KYZATREX [Suspect]
     Active Substance: TESTOSTERONE UNDECANOATE
     Dosage: FREQUENCY : TWICE A DAY;?
     Route: 048
     Dates: start: 20241217, end: 20241224

REACTIONS (4)
  - Lymphadenopathy [None]
  - Lymphadenopathy [None]
  - Lymph node pain [None]
  - Therapy cessation [None]

NARRATIVE: CASE EVENT DATE: 20241218
